FAERS Safety Report 6696265-6 (Version None)
Quarter: 2010Q2

REPORT INFORMATION
  Report Type: 
  Country: None (occurrence: None)
  Receive Date: 20100419
  Receipt Date: 20090723
  Transmission Date: 20101027
  Serious: No
  Sender: FDA-Public Use
  Company Number: 2009-00417

PATIENT
  Age: 34 Year
  Sex: Female
  Weight: 120.2032 kg

DRUGS (5)
  1. ZICAM COLD REMEDY GEL SWABS [Suspect]
     Dosage: QID - USED 4 SWABS
     Dates: start: 20090701, end: 20090701
  2. VENTOLIN [Concomitant]
  3. ALBUTEROL [Concomitant]
  4. CELEXA [Concomitant]
  5. QVAR INHALER [Concomitant]

REACTIONS (1)
  - ANOSMIA [None]
